FAERS Safety Report 7332115-2 (Version None)
Quarter: 2011Q1

REPORT INFORMATION
  Report Type: 
  Country: None (occurrence: None)
  Receive Date: 20110304
  Receipt Date: 20110221
  Transmission Date: 20110831
  Serious: Yes (Other)
  Sender: FDA-Public Use
  Company Number: PHHO2011IT03282

PATIENT
  Sex: Female

DRUGS (5)
  1. SOLDESAM [Suspect]
     Dosage: 8 MG, QD
     Dates: start: 20110101
  2. TASIGNA [Suspect]
     Indication: GASTROINTESTINAL STROMAL TUMOUR
     Dosage: 400 MG, BID
     Dates: start: 20110207, end: 20110210
  3. LYRICA [Concomitant]
  4. MEPRAL [Concomitant]
  5. EUTIROX [Concomitant]

REACTIONS (2)
  - RESPIRATORY DISTRESS [None]
  - ATRIAL FIBRILLATION [None]
